FAERS Safety Report 13277762 (Version 3)
Quarter: 2018Q2

REPORT INFORMATION
  Report Type: Report from Study
  Country: US (occurrence: US)
  Receive Date: 20170228
  Receipt Date: 20180403
  Transmission Date: 20180711
  Serious: Yes (Other)
  Sender: FDA-Public Use
  Company Number: US-UCBSA-2016036543

PATIENT
  Age: 37 Year
  Sex: Female
  Weight: 63.95 kg

DRUGS (18)
  1. SULFASALAZINE. [Concomitant]
     Active Substance: SULFASALAZINE
     Indication: PSORIATIC ARTHROPATHY
     Dosage: 1000 MG, 2X/DAY (BID)
     Route: 048
     Dates: start: 201508
  2. VITAMIN D [Concomitant]
     Active Substance: CHOLECALCIFEROL
     Indication: PRODUCT USED FOR UNKNOWN INDICATION
     Dosage: 1000 IU
     Route: 048
     Dates: start: 20160223, end: 20160823
  3. CERTOLIZUMAB PEGOL RA [Suspect]
     Active Substance: CERTOLIZUMAB PEGOL
     Dosage: 400 MG, UNK
     Dates: start: 20161020, end: 20161020
  4. MEDROL [Concomitant]
     Active Substance: METHYLPREDNISOLONE
     Dosage: 2 MG
     Route: 048
     Dates: start: 20160223, end: 20161028
  5. LOVENOX [Concomitant]
     Active Substance: ENOXAPARIN SODIUM
     Indication: THROMBOSIS
     Dosage: 40 ?G
     Dates: start: 20160308, end: 20161028
  6. FLU [Concomitant]
     Active Substance: INFLUENZA VIRUS VACCINE
     Indication: PRODUCT USED FOR UNKNOWN INDICATION
  7. SULFASALAZINE. [Concomitant]
     Active Substance: SULFASALAZINE
     Dosage: 2000 MG
     Route: 048
     Dates: start: 20160223, end: 20161028
  8. DIPHTHERIA TETANUS ACELLULAR PERTUSSIS [Concomitant]
     Indication: PRODUCT USED FOR UNKNOWN INDICATION
     Dosage: 1 DF, ONCE DAILY (QD)
     Route: 030
     Dates: start: 20140515, end: 20140515
  9. TERCONAZOLE. [Concomitant]
     Active Substance: TERCONAZOLE
     Dosage: 7 TOTAL
     Route: 067
     Dates: start: 20160810, end: 20160831
  10. TYLENOL [Concomitant]
     Active Substance: ACETAMINOPHEN
     Indication: HEADACHE
     Dosage: 325 MG, 2 TOTAL
     Route: 048
     Dates: start: 20160223, end: 20160524
  11. FOLIC ACID. [Concomitant]
     Active Substance: FOLIC ACID
     Indication: PSORIATIC ARTHROPATHY
     Dosage: 20 MG, ONCE DAILY (QD)
     Route: 048
     Dates: start: 20160123, end: 20161028
  12. TERCONAZOLE. [Concomitant]
     Active Substance: TERCONAZOLE
     Indication: FUNGAL INFECTION
     Dosage: 3 TOTAL
     Route: 067
     Dates: start: 20160720, end: 20160726
  13. CERTOLIZUMAB PEGOL RA [Suspect]
     Active Substance: CERTOLIZUMAB PEGOL
     Indication: PSORIATIC ARTHROPATHY
     Dosage: 400 MG, MONTHLY (QM)
     Route: 058
     Dates: start: 20150801, end: 20161006
  14. HEPARIN [Concomitant]
     Active Substance: HEPARIN SODIUM
     Indication: PRODUCT USED FOR UNKNOWN INDICATION
  15. DIPHTHERIA TETANUS ACELLULAR PERTUSSIS [Concomitant]
     Dosage: 1 DF, ONCE DAILY (QD)
     Route: 030
     Dates: start: 20161012, end: 20161012
  16. MEDROL [Concomitant]
     Active Substance: METHYLPREDNISOLONE
     Indication: PSORIATIC ARTHROPATHY
     Dosage: 2 MG, ONCE DAILY (QD)
     Route: 048
     Dates: start: 201508
  17. IRON [Concomitant]
     Active Substance: IRON
     Indication: PRODUCT USED FOR UNKNOWN INDICATION
     Dosage: 1 DF, ONCE DAILY (QD)
     Route: 048
     Dates: start: 20160223, end: 20161028
  18. PRENATAL VITAMINS [Concomitant]
     Active Substance: VITAMINS
     Dosage: 1 DF, ONCE DAILY (QD)
     Route: 048
     Dates: start: 20160223, end: 20161028

REACTIONS (5)
  - Pregnancy [Unknown]
  - Fall [Recovered/Resolved]
  - Breast feeding [Unknown]
  - Premature delivery [Unknown]
  - Placental disorder [Unknown]

NARRATIVE: CASE EVENT DATE: 2016
